FAERS Safety Report 23407394 (Version 1)
Quarter: 2024Q1

REPORT INFORMATION
  Report Type: Spontaneous
  Country: US (occurrence: US)
  Receive Date: 20240117
  Receipt Date: 20240117
  Transmission Date: 20240410
  Serious: Yes (Hospitalization)
  Sender: FDA-Public Use
  Company Number: US-PROCTER_AND_GAMBLE-PH24000122

PATIENT
  Age: 3 Year
  Sex: Female

DRUGS (1)
  1. PEPTO-BISMOL [Suspect]
     Active Substance: BISMUTH SUBSALICYLATE
     Dosage: UNK, 1 ONLY
     Route: 048
     Dates: start: 202312, end: 202312

REACTIONS (4)
  - Unevaluable event [Unknown]
  - Accidental exposure to product by child [Unknown]
  - Exposure via ingestion [Unknown]
  - Failure of child resistant product closure [Unknown]

NARRATIVE: CASE EVENT DATE: 20231201
